FAERS Safety Report 12612982 (Version 2)
Quarter: 2016Q3

REPORT INFORMATION
  Report Type: Spontaneous
  Country: FR (occurrence: FR)
  Receive Date: 20160802
  Receipt Date: 20160901
  Transmission Date: 20161109
  Serious: Yes (Hospitalization, Other)
  Sender: FDA-Public Use
  Company Number: FR-AMGEN-FRASP2016098159

PATIENT
  Age: 67 Year
  Sex: Male

DRUGS (10)
  1. ARANESP [Suspect]
     Active Substance: DARBEPOETIN ALFA
     Indication: PRODUCT USED FOR UNKNOWN INDICATION
     Dosage: 100 MUG, QMO
     Route: 051
  2. COLCHICINE. [Concomitant]
     Active Substance: COLCHICINE
     Indication: HYPERURICAEMIA
     Dosage: 0.5 MG, TID
     Dates: start: 20160527
  3. BISOCE [Concomitant]
     Active Substance: BISOPROLOL
     Dosage: 10 MG, QD
     Route: 048
  4. TIVICAY [Concomitant]
     Active Substance: DOLUTEGRAVIR SODIUM
     Dosage: 50 MG, UNK
     Route: 048
  5. LASILIX SPECIAL [Concomitant]
     Active Substance: FUROSEMIDE
     Dosage: 0.25 DF, QD, 500 MG TABLET
     Route: 048
     Dates: end: 20160621
  6. EPIVIR [Concomitant]
     Active Substance: LAMIVUDINE
     Dosage: 150 MG, QD
     Dates: end: 2016
  7. ZIAGEN [Concomitant]
     Active Substance: ABACAVIR SULFATE
     Dosage: 600 MG, QD
     Route: 048
  8. PRAVASTATIN. [Concomitant]
     Active Substance: PRAVASTATIN
     Dosage: 40 MG, QD
     Route: 048
  9. RAMIPRIL. [Concomitant]
     Active Substance: RAMIPRIL
     Dosage: 2.5 MG IN MORNING 1.25 MG IN EVENING
     Route: 048
     Dates: end: 20160621
  10. ELIQUIS [Concomitant]
     Active Substance: APIXABAN
     Dosage: 2.5 MG, BID
     Route: 048
     Dates: end: 201606

REACTIONS (4)
  - Urinary retention [Unknown]
  - Acute kidney injury [Recovering/Resolving]
  - Blood uric acid increased [Unknown]
  - Blood bicarbonate decreased [Not Recovered/Not Resolved]

NARRATIVE: CASE EVENT DATE: 20160621
